FAERS Safety Report 9674821 (Version 2)
Quarter: 2013Q4

REPORT INFORMATION
  Report Type: Spontaneous
  Country: US (occurrence: US)
  Receive Date: 20131107
  Receipt Date: 20131213
  Transmission Date: 20140711
  Serious: Yes (Other)
  Sender: FDA-Public Use
  Company Number: US-ROCHE-1298773

PATIENT
  Sex: Female
  Weight: 54.03 kg

DRUGS (2)
  1. PEGASYS [Suspect]
     Indication: CHRONIC HEPATITIS C
     Route: 065
     Dates: start: 20081108, end: 200901
  2. RIBAPAK [Suspect]
     Indication: CHRONIC HEPATITIS C
     Dosage: 1000 MG DAILY DIVIDED DOSES
     Route: 065
     Dates: start: 20081108, end: 200901

REACTIONS (3)
  - Renal failure [Unknown]
  - Red blood cell count decreased [Unknown]
  - Weight decreased [Unknown]
